FAERS Safety Report 7018530-5 (Version None)
Quarter: 2010Q3

REPORT INFORMATION
  Report Type: 
  Country: None (occurrence: None)
  Receive Date: 20100924
  Receipt Date: 20100913
  Transmission Date: 20110219
  Serious: Yes (Hospitalization, Other)
  Sender: FDA-Public Use
  Company Number: 1000016351

PATIENT
  Age: 78 Year
  Sex: Female

DRUGS (5)
  1. ESCITALOPRAM OXALATE [Suspect]
     Dosage: 5 MG (5 MG, 1 IN 1 D), ORAL
     Route: 048
     Dates: end: 20100501
  2. ARICEPT [Suspect]
     Dosage: 5 MG 95 MG, 1 IN 1 D), ORAL
     Route: 048
     Dates: end: 20100429
  3. ARICEPT [Suspect]
     Dosage: 10 MG (10 MG, 1 IN 1 D), ORAL
     Route: 048
     Dates: start: 20100430, end: 20100501
  4. RISPERDAL [Suspect]
     Dosage: 1 M (1 MG, 1 IN 1 D), ORAL; 0.5 MG (0.5 MG, 1 IN 1 D), ORAL
     Route: 048
     Dates: end: 20100429
  5. RISPERDAL [Suspect]
     Dosage: 1 M (1 MG, 1 IN 1 D), ORAL; 0.5 MG (0.5 MG, 1 IN 1 D), ORAL
     Route: 048
     Dates: start: 20100430, end: 20100501

REACTIONS (8)
  - BLOOD GLUCOSE INCREASED [None]
  - COMA [None]
  - DRUG INTERACTION [None]
  - HYPOTENSION [None]
  - MUSCLE RIGIDITY [None]
  - SOMNOLENCE [None]
  - SOPOR [None]
  - TACHYCARDIA [None]
